FAERS Safety Report 21409642 (Version 1)
Quarter: 2022Q4

REPORT INFORMATION
  Report Type: Spontaneous
  Country: US (occurrence: None)
  Receive Date: 20221003
  Receipt Date: 20221003
  Transmission Date: 20230113
  Serious: Yes (Hospitalization)
  Sender: FDA-Public Use
  Company Number: None

PATIENT
  Sex: Male

DRUGS (2)
  1. AMINOCAPROIC ACID [Suspect]
     Active Substance: AMINOCAPROIC ACID
     Indication: Platelet disorder
     Dosage: 1550MG EVERY 6 HOURS PRN ORAL? ?
     Route: 048
     Dates: start: 20210414
  2. NOVOSEVEN RT [Suspect]
     Active Substance: COAGULATION FACTOR VIIA RECOMBINANT HUMAN
     Indication: Platelet disorder
     Dosage: 2MG AS NEEDED IV
     Route: 042
     Dates: start: 20210414

REACTIONS (2)
  - Mouth haemorrhage [None]
  - Haemorrhage [None]
